FAERS Safety Report 5084059-7 (Version None)
Quarter: 2006Q3

REPORT INFORMATION
  Report Type: 
  Country: None (occurrence: None)
  Receive Date: 20060820
  Receipt Date: 20060810
  Transmission Date: 20061208
  Serious: Yes (Death)
  Sender: FDA-Public Use
  Company Number: US-ABBOTT-06P-163-0340591-00

PATIENT
  Sex: Male

DRUGS (2)
  1. KALETRA [Suspect]
     Indication: DRUG EXPOSURE DURING PREGNANCY
     Route: 065
  2. DISOPROXIL FUMARATE/EMTRICITABINE [Suspect]
     Indication: DRUG EXPOSURE DURING PREGNANCY
     Route: 065

REACTIONS (11)
  - BRAIN STEM HAEMORRHAGE [None]
  - CAPILLARY DISORDER [None]
  - CEREBRAL HAEMORRHAGE [None]
  - CONTUSION [None]
  - FONTANELLE BULGING [None]
  - HAEMORRHAGE INTRACRANIAL [None]
  - HYPOTONIA [None]
  - PALLOR [None]
  - RESPIRATORY ARREST [None]
  - STILLBIRTH [None]
  - SUBARACHNOID HAEMORRHAGE [None]
